FAERS Safety Report 4474615-9 (Version None)
Quarter: 2004Q4

REPORT INFORMATION
  Report Type: 
  Country: None (occurrence: None)
  Receive Date: 20041012
  Receipt Date: 20041008
  Transmission Date: 20050328
  Serious: Yes (Death, Hospitalization)
  Sender: FDA-Public Use
  Company Number: THQ2004A00882

PATIENT
  Age: 64 Year
  Sex: Male

DRUGS (4)
  1. ZOTON (LANSOPRAZOLE) (CAPUSLES) [Suspect]
     Dosage: 30 MG (30 MG, 1 IN 1 D); PER ORAL
     Route: 048
     Dates: start: 20040120, end: 20040102
  2. FOSAMAX [Concomitant]
     Dosage: 1 G(1G, 1 IN 1 D); PER ORAL
     Route: 048
     Dates: start: 20040102, end: 20040223
  3. CALCICHEW (CALCIUM CARBONATE) [Concomitant]
  4. PREDNISONLONE (PREDNISOLONE) [Concomitant]

REACTIONS (10)
  - ANAEMIA [None]
  - ANURIA [None]
  - CHOLESTASIS [None]
  - DIALYSIS [None]
  - ENCEPHALOPATHY [None]
  - HEPATITIS ACUTE [None]
  - MULTI-ORGAN FAILURE [None]
  - PYREXIA [None]
  - RENAL FAILURE [None]
  - SHOCK [None]
